FAERS Safety Report 5908181-5 (Version None)
Quarter: 2008Q4

REPORT INFORMATION
  Report Type: 
  Country: None (occurrence: None)
  Receive Date: 20081003
  Receipt Date: 20080923
  Transmission Date: 20090506
  Serious: Yes (Hospitalization)
  Sender: FDA-Public Use
  Company Number: DE-ABBOTT-08P-062-0472547-00

PATIENT
  Sex: Male

DRUGS (2)
  1. TRENANTONE [Suspect]
     Indication: PROSTATE CANCER METASTATIC
     Route: 058
     Dates: start: 20080627
  2. FLUTAMIDE [Concomitant]
     Indication: PROSTATE CANCER METASTATIC
     Route: 048
     Dates: start: 20080613, end: 20080711

REACTIONS (26)
  - ANXIETY [None]
  - APHASIA [None]
  - CEREBELLAR ATAXIA [None]
  - CHILLS [None]
  - CONVULSION [None]
  - COORDINATION ABNORMAL [None]
  - DELUSION [None]
  - DEPRESSION [None]
  - DYSPHEMIA [None]
  - FATIGUE [None]
  - FEAR OF DEATH [None]
  - GAIT DISTURBANCE [None]
  - HEARING IMPAIRED [None]
  - HYPOKINESIA [None]
  - METABOLIC ENCEPHALOPATHY [None]
  - MUSCLE TWITCHING [None]
  - NASOPHARYNGITIS [None]
  - NIGHTMARE [None]
  - OCULOCEPHALOGYRIC REFLEX ABSENT [None]
  - PAROSMIA [None]
  - PSYCHOMOTOR SKILLS IMPAIRED [None]
  - READING DISORDER [None]
  - SECONDARY HYPOTHYROIDISM [None]
  - SPEECH DISORDER [None]
  - THINKING ABNORMAL [None]
  - VISUAL IMPAIRMENT [None]
